FAERS Safety Report 6864661-X (Version None)
Quarter: 2010Q3

REPORT INFORMATION
  Report Type: 
  Country: None (occurrence: None)
  Receive Date: 20100721
  Receipt Date: 20080527
  Transmission Date: 20110219
  Serious: Yes (Hospitalization, Other)
  Sender: FDA-Public Use
  Company Number: US-PFIZER INC-2008028659

PATIENT
  Sex: Male
  Weight: 114.3 kg

DRUGS (1)
  1. CHANTIX [Suspect]
     Indication: EX-TOBACCO USER
     Route: 048
     Dates: start: 20080101

REACTIONS (7)
  - AGGRESSION [None]
  - ANGER [None]
  - DISSOCIATION [None]
  - HYPERTENSION [None]
  - INSOMNIA [None]
  - PSYCHOMOTOR HYPERACTIVITY [None]
  - RESTLESSNESS [None]
